FAERS Safety Report 16511224 (Version 1)
Quarter: 2019Q3

REPORT INFORMATION
  Report Type: Spontaneous
  Country: US (occurrence: US)
  Receive Date: 20190701
  Receipt Date: 20190701
  Transmission Date: 20191004
  Serious: Yes (Other)
  Sender: FDA-Public Use
  Company Number: None

PATIENT
  Age: 12 Year
  Sex: Male

DRUGS (1)
  1. SINGULAIR [Suspect]
     Active Substance: MONTELUKAST SODIUM
     Indication: ASTHMA
     Dates: start: 20160501, end: 20160912

REACTIONS (5)
  - Abdominal pain upper [None]
  - Suicidal ideation [None]
  - Personality change [None]
  - Disturbance in attention [None]
  - Hallucination [None]

NARRATIVE: CASE EVENT DATE: 20160912
